FAERS Safety Report 7020181-3 (Version None)
Quarter: 2010Q3

REPORT INFORMATION
  Report Type: 
  Country: None (occurrence: None)
  Receive Date: 20100927
  Receipt Date: 20100915
  Transmission Date: 20110219
  Serious: Yes (Hospitalization, Other)
  Sender: FDA-Public Use
  Company Number: 2010AC000511

PATIENT
  Sex: Male

DRUGS (24)
  1. DIGOXIN [Suspect]
     Dosage: 0.125 MG; QD; PO
     Route: 048
     Dates: start: 20071101, end: 20080701
  2. COREG [Concomitant]
  3. ASPIRIN [Concomitant]
  4. ALLOPURINOL [Concomitant]
  5. GLYBURIDE [Concomitant]
  6. POTASSIUM [Concomitant]
  7. LIPITOR [Concomitant]
  8. LISINOPRIL [Concomitant]
  9. NABUMETONE [Concomitant]
  10. HYDROCODONE [Concomitant]
  11. NITROGLYCERIN [Concomitant]
  12. IMDUR [Concomitant]
  13. EPLERENONE [Concomitant]
  14. REGLAN [Concomitant]
  15. AMIODARONE [Concomitant]
  16. ASPIRIN [Concomitant]
  17. CARVEDILOL [Concomitant]
  18. FUROSEMIDE [Concomitant]
  19. INSPRA [Concomitant]
  20. ISOSORBIDE [Concomitant]
  21. WARFARIN SODIUM [Concomitant]
  22. AZITHROMYCIN [Concomitant]
  23. DOXYCYCLINE [Concomitant]
  24. BACTRIM [Concomitant]

REACTIONS (28)
  - ANGINA PECTORIS [None]
  - ATRIAL FIBRILLATION [None]
  - ATRIAL FLUTTER [None]
  - CARDIAC DISORDER [None]
  - CARDIAC FAILURE CONGESTIVE [None]
  - COLD SWEAT [None]
  - CONDITION AGGRAVATED [None]
  - CONTUSION [None]
  - DECREASED APPETITE [None]
  - DIZZINESS [None]
  - DRUG HYPERSENSITIVITY [None]
  - DRUG INTOLERANCE [None]
  - EAR CONGESTION [None]
  - ELECTROMECHANICAL DISSOCIATION [None]
  - FALL [None]
  - FATIGUE [None]
  - HEART TRANSPLANT [None]
  - HYPOTENSION [None]
  - INCORRECT DOSE ADMINISTERED [None]
  - NAUSEA [None]
  - NO THERAPEUTIC RESPONSE [None]
  - SCAR [None]
  - SINUS CONGESTION [None]
  - SKIN LESION [None]
  - SYNCOPE [None]
  - THERAPEUTIC AGENT TOXICITY [None]
  - VOMITING [None]
  - WEIGHT DECREASED [None]
